FAERS Safety Report 16704267 (Version 1)
Quarter: 2019Q3

REPORT INFORMATION
  Report Type: Spontaneous
  Country: NL (occurrence: FR)
  Receive Date: 20190814
  Receipt Date: 20190814
  Transmission Date: 20191004
  Serious: Yes (Hospitalization)
  Sender: FDA-Public Use
  Company Number: FR-FRESENIUS KABI-FK201908850

PATIENT
  Age: 70 Year
  Sex: Male
  Weight: 88 kg

DRUGS (12)
  1. AFLIBERCEPT [Suspect]
     Active Substance: AFLIBERCEPT
     Dosage: 352 MG/KG,QOW
     Route: 042
     Dates: start: 20161214, end: 20161214
  2. FLUOROURACIL. [Suspect]
     Active Substance: FLUOROURACIL
     Indication: COLORECTAL CANCER METASTATIC
     Dosage: 494 MG,QOW
     Route: 040
     Dates: start: 20170111, end: 20170111
  3. FLUOROURACIL. [Suspect]
     Active Substance: FLUOROURACIL
     Dosage: UNK UNK,QOW
     Route: 042
     Dates: start: 20160801
  4. FOLINIC ACID [Suspect]
     Active Substance: LEUCOVORIN
     Dosage: 411 MG,QOW
     Route: 042
     Dates: start: 20170111, end: 20170111
  5. AFLIBERCEPT [Suspect]
     Active Substance: AFLIBERCEPT
     Indication: COLORECTAL CANCER METASTATIC
     Route: 042
     Dates: start: 20140801, end: 20140801
  6. FLUOROURACIL. [Suspect]
     Active Substance: FLUOROURACIL
     Dosage: 2964 MG,QOW
     Route: 041
     Dates: start: 20170111
  7. IRINOTECAN (MANUFACTURER UNKNOWN) [Suspect]
     Active Substance: IRINOTECAN
     Dosage: 296 MG,QOW
     Route: 042
     Dates: start: 20170111, end: 20170111
  8. LERCANIDIPINE HYDROCHLORIDE [Concomitant]
     Active Substance: LERCANIDIPINE HYDROCHLORIDE
     Indication: HYPERTENSION
     Dosage: UNK UNK,UNK
     Route: 065
  9. FOLINIC ACID [Suspect]
     Active Substance: LEUCOVORIN
     Indication: COLORECTAL CANCER METASTATIC
     Dosage: UNK UNK,QOW
     Route: 042
     Dates: start: 20140801, end: 20140801
  10. LOSARTAN POTASSIUM. [Concomitant]
     Active Substance: LOSARTAN POTASSIUM
     Indication: HYPERTENSION
     Dosage: UNK UNK,UNK
     Route: 065
  11. IRINOTECAN (MANUFACTURER UNKNOWN) [Suspect]
     Active Substance: IRINOTECAN
     Indication: COLORECTAL CANCER METASTATIC
     Dosage: UNK UNK, QOW
     Route: 042
     Dates: start: 20160801, end: 20160801
  12. FLUOROURACIL. [Suspect]
     Active Substance: FLUOROURACIL
     Dosage: UNK UNK,QOW
     Route: 040
     Dates: start: 20140801, end: 20140801

REACTIONS (1)
  - Pulmonary embolism [Recovered/Resolved]

NARRATIVE: CASE EVENT DATE: 20170118
